FAERS Safety Report 5760595-2 (Version None)
Quarter: 2008Q2

REPORT INFORMATION
  Report Type: 
  Country: None (occurrence: None)
  Receive Date: 20080602
  Receipt Date: 20080423
  Transmission Date: 20081010
  Serious: No
  Sender: FDA-Public Use
  Company Number: ADE# 08-054

PATIENT
  Age: 53 Year
  Sex: Male
  Weight: 113.3993 kg

DRUGS (1)
  1. BACLOFEN [Suspect]
     Indication: MULTIPLE SCLEROSIS
     Dosage: 1-2 TABS, 4X DAILY
     Dates: start: 20080107

REACTIONS (2)
  - DRUG EFFECT DECREASED [None]
  - THERAPEUTIC RESPONSE UNEXPECTED WITH DRUG SUBSTITUTION [None]
